FAERS Safety Report 6141708-X (Version None)
Quarter: 2009Q1

REPORT INFORMATION
  Report Type: 
  Country: None (occurrence: None)
  Receive Date: 20090331
  Receipt Date: 20090317
  Transmission Date: 20090719
  Serious: Yes (Hospitalization, Other)
  Sender: FDA-Public Use
  Company Number: 2009S1004705

PATIENT
  Age: 47 Year
  Sex: Male

DRUGS (2)
  1. TEMAZEPAM (TEMAZEPAM) (10 MG) [Suspect]
     Indication: DEPRESSION
     Dosage: 280 MG; ONCE
  2. CITALOPRAM HYDROBROMIDE [Concomitant]

REACTIONS (7)
  - APNOEA [None]
  - CEREBRAL PALSY [None]
  - GRAND MAL CONVULSION [None]
  - LOSS OF CONSCIOUSNESS [None]
  - MENINGITIS TUBERCULOUS [None]
  - OVERDOSE [None]
  - PNEUMONIA ASPIRATION [None]
